FAERS Safety Report 8820157 (Version 2)
Quarter: 2014Q3

REPORT INFORMATION
  Report Type: Report from Study
  Country: US (occurrence: US)
  Receive Date: 20121001
  Receipt Date: 20140822
  Transmission Date: 20150326
  Serious: Yes (Hospitalization)
  Sender: FDA-Public Use
  Company Number: US-ROCHE-1131070

PATIENT
  Sex: Male
  Weight: 110.68 kg

DRUGS (2)
  1. PREDNISONE. [Concomitant]
     Active Substance: PREDNISONE
     Route: 065
  2. RITUXAN [Suspect]
     Active Substance: RITUXIMAB
     Indication: AUTOIMMUNE HAEMOLYTIC ANAEMIA
     Route: 042

REACTIONS (7)
  - Syncope [Unknown]
  - Paroxysmal nocturnal haemoglobinuria [Unknown]
  - Haematuria [Unknown]
  - Fatigue [Unknown]
  - Haematocrit decreased [Unknown]
  - Jaundice [Unknown]
  - Off label use [Unknown]
